FAERS Safety Report 5742826-8 (Version None)
Quarter: 2008Q2

REPORT INFORMATION
  Report Type: 
  Country: None (occurrence: None)
  Receive Date: 20080519
  Receipt Date: 20080512
  Transmission Date: 20081010
  Serious: Yes (Hospitalization, Other)
  Sender: FDA-Public Use
  Company Number: BR-JNJFOC-20080502653

PATIENT
  Sex: Female
  Weight: 49 kg

DRUGS (4)
  1. ACETAMINOPHEN W/ CODEINE [Suspect]
     Route: 048
  2. ACETAMINOPHEN W/ CODEINE [Suspect]
     Route: 048
  3. ACETAMINOPHEN W/ CODEINE [Suspect]
     Indication: PROCEDURAL PAIN
     Dosage: ACETAMINOPHEN 500 MG/ CODEINE PHOSPHATE 30 MG
     Route: 048
  4. RIVOTRIL [Concomitant]
     Indication: TREMOR

REACTIONS (12)
  - ANOREXIA [None]
  - DIZZINESS [None]
  - DRUG INEFFECTIVE [None]
  - DYSPNOEA [None]
  - NAUSEA [None]
  - PAIN [None]
  - PAIN IN EXTREMITY [None]
  - PALLOR [None]
  - PRURITUS GENERALISED [None]
  - SKIN DISCOLOURATION [None]
  - VOMITING [None]
  - WEIGHT DECREASED [None]
